FAERS Safety Report 13864834 (Version 2)
Quarter: 2017Q3

REPORT INFORMATION
  Report Type: Spontaneous
  Country: FR (occurrence: FR)
  Receive Date: 20170814
  Receipt Date: 20170907
  Transmission Date: 20171127
  Serious: Yes (Hospitalization)
  Sender: FDA-Public Use
  Company Number: FR-PFIZER INC-2017343858

PATIENT
  Age: 52 Year
  Sex: Male

DRUGS (7)
  1. DOCETAXEL HOSPIRA [Suspect]
     Active Substance: DOCETAXEL
     Indication: SQUAMOUS CELL CARCINOMA
     Dosage: 135 MG, SINGLE
     Route: 042
     Dates: start: 20161202, end: 20161202
  2. CISPLATINE PFIZER [Suspect]
     Active Substance: CISPLATIN
     Dosage: 72 MG, DAILY
     Route: 042
     Dates: start: 20161226
  3. DOCETAXEL HOSPIRA [Suspect]
     Active Substance: DOCETAXEL
     Dosage: 72 MG, DAILY
     Route: 042
     Dates: start: 20161226
  4. FLUOROURACILE PFIZER [Suspect]
     Active Substance: FLUOROURACIL
     Dosage: 720 MG, DAILY(FAST-DRIP)
     Route: 042
     Dates: start: 20161226
  5. FLUOROURACILE PFIZER [Suspect]
     Active Substance: FLUOROURACIL
     Dosage: 1800 MG, DAILY (CONTINUOUSLY DURING 2 DAYS)
     Route: 042
  6. CISPLATINE PFIZER [Suspect]
     Active Substance: CISPLATIN
     Indication: SQUAMOUS CELL CARCINOMA
     Dosage: 135 MG, SINGLE
     Route: 042
     Dates: start: 20161202, end: 20161202
  7. FLUOROURACILE PFIZER [Suspect]
     Active Substance: FLUOROURACIL
     Indication: SQUAMOUS CELL CARCINOMA
     Dosage: 1350 MG, DAILY
     Route: 042
     Dates: start: 20161202, end: 20161206

REACTIONS (3)
  - Acute kidney injury [Recovered/Resolved]
  - Hypotension [Recovered/Resolved]
  - Bone marrow failure [Recovered/Resolved]

NARRATIVE: CASE EVENT DATE: 20161208
